FAERS Safety Report 18089698 (Version 1)
Quarter: 2020Q3

REPORT INFORMATION
  Report Type: Report from Study
  Country: DE (occurrence: DE)
  Receive Date: 20200730
  Receipt Date: 20200730
  Transmission Date: 20201103
  Serious: Yes (Hospitalization)
  Sender: FDA-Public Use
  Company Number: DE-SA-2020SA194391

PATIENT

DRUGS (2)
  1. CABAZITAXEL [Suspect]
     Active Substance: CABAZITAXEL
     Indication: PROSTATE CANCER
     Dosage: UNK UNK, QCY
     Route: 042
     Dates: start: 20190327, end: 20190327
  2. CABAZITAXEL [Suspect]
     Active Substance: CABAZITAXEL
     Dosage: 50 MG, QCY
     Route: 042
     Dates: start: 20190320, end: 20190320

REACTIONS (1)
  - Cardiovascular insufficiency [Recovering/Resolving]

NARRATIVE: CASE EVENT DATE: 20190327
